FAERS Safety Report 6677724-9 (Version None)
Quarter: 2010Q2

REPORT INFORMATION
  Report Type: 
  Country: None (occurrence: None)
  Receive Date: 20100412
  Receipt Date: 20100106
  Transmission Date: 20101027
  Serious: No
  Sender: FDA-Public Use
  Company Number: US-ALEXION-A200901065

PATIENT
  Sex: Male

DRUGS (5)
  1. SOLIRIS [Suspect]
     Indication: PAROXYSMAL NOCTURNAL HAEMOGLOBINURIA
     Dosage: UNK
     Route: 042
     Dates: start: 20081125
  2. SOLIRIS [Suspect]
     Dosage: 900 MG, Q14D
     Route: 042
     Dates: end: 20090801
  3. SOLIRIS [Suspect]
     Dosage: 1200 MG, Q14D
     Route: 042
     Dates: start: 20090825
  4. SOLIRIS [Suspect]
     Dosage: 900 MG, Q14D
     Route: 042
  5. SOLIRIS [Suspect]
     Dosage: 1200 MG, UNK
     Route: 042
     Dates: start: 20091229, end: 20091229

REACTIONS (4)
  - ACUTE SINUSITIS [None]
  - BRONCHITIS [None]
  - CHROMATURIA [None]
  - PRODUCTIVE COUGH [None]
